FAERS Safety Report 8436949-2 (Version None)
Quarter: 2012Q2

REPORT INFORMATION
  Report Type: 
  Country: None (occurrence: None)
  Receive Date: 20120614
  Receipt Date: 20120302
  Transmission Date: 20120825
  Serious: No
  Sender: FDA-Public Use
  Company Number: US-AMGEN-USASP2012014130

PATIENT
  Sex: Male

DRUGS (2)
  1. ARANESP [Suspect]
     Indication: SIDEROBLASTIC ANAEMIA
     Dosage: 200 MUG, Q2MO
  2. ARANESP [Suspect]
     Dosage: 200 MUG, QMO

REACTIONS (4)
  - FATIGUE [None]
  - ASTHENIA [None]
  - DYSPNOEA [None]
  - HYPERTENSION [None]
